FAERS Safety Report 7398000-5 (Version None)
Quarter: 2011Q2

REPORT INFORMATION
  Report Type: 
  Country: None (occurrence: None)
  Receive Date: 20110406
  Receipt Date: 20110324
  Transmission Date: 20111010
  Serious: Yes (Other)
  Sender: FDA-Public Use
  Company Number: PHHY2011GR23993

PATIENT
  Sex: Male

DRUGS (1)
  1. AFINITOR [Suspect]
     Indication: RENAL CANCER
     Dosage: 10MG
     Route: 048
     Dates: start: 20110301

REACTIONS (4)
  - HAEMORRHAGE [None]
  - EPISTAXIS [None]
  - TOXICITY TO VARIOUS AGENTS [None]
  - HAEMATOCRIT DECREASED [None]
